FAERS Safety Report 20753763 (Version 1)
Quarter: 2022Q2

REPORT INFORMATION
  Report Type: Spontaneous
  Country: US (occurrence: None)
  Receive Date: 20220426
  Receipt Date: 20220426
  Transmission Date: 20220721
  Serious: No
  Sender: FDA-Public Use
  Company Number: US-ROCHE-2818325

PATIENT
  Sex: Male

DRUGS (1)
  1. ESBRIET [Suspect]
     Active Substance: PIRFENIDONE
     Indication: Idiopathic pulmonary fibrosis
     Dosage: 267 MG 3 TIMES A DAY FOR 7 DAYS, THEN 534 MG 3TIMES A DAY FOR 7 DAYS AND THE 801 MG 3 TIMES A DAY TH
     Route: 048
     Dates: start: 20210316

REACTIONS (2)
  - Depression [Unknown]
  - Anxiety [Unknown]
